FAERS Safety Report 4661828-6 (Version None)
Quarter: 2005Q2

REPORT INFORMATION
  Report Type: 
  Country: None (occurrence: None)
  Receive Date: 20050511
  Receipt Date: 20050511
  Transmission Date: 20051028
  Serious: Yes (Hospitalization)
  Sender: FDA-Public Use
  Company Number: None

PATIENT
  Age: 81 Year
  Sex: Male

DRUGS (10)
  1. METOPROLOL [Suspect]
     Indication: HYPERTENSION
     Dosage: 25 MG QD
     Dates: start: 20020813
  2. GLYBURIDE [Concomitant]
  3. WARFARIN [Concomitant]
  4. TERAZOSIN [Concomitant]
  5. FUROSEMIDE [Concomitant]
  6. ZOCOR [Concomitant]
  7. LORTAB [Concomitant]
  8. PAROXETINE [Concomitant]
  9. LORATADINE [Concomitant]
  10. POTASSIUM CHLORIDE [Concomitant]

REACTIONS (1)
  - BRADYCARDIA [None]
